FAERS Safety Report 5114072-2 (Version None)
Quarter: 2006Q3

REPORT INFORMATION
  Report Type: 
  Country: None (occurrence: None)
  Receive Date: 20060925
  Receipt Date: 20060818
  Transmission Date: 20061208
  Serious: Yes (Other)
  Sender: FDA-Public Use
  Company Number: US-GLAXOSMITHKLINE-A0617351A

PATIENT
  Sex: Male
  Weight: 2.3 kg

DRUGS (4)
  1. EPZICOM [Suspect]
     Dosage: 1TAB PER DAY
  2. REYATAZ [Concomitant]
     Dosage: 300MG PER DAY
  3. RITONAVIR [Concomitant]
     Dosage: 100MG PER DAY
  4. GLYBURIDE [Concomitant]
     Dosage: 2.5MG PER DAY

REACTIONS (7)
  - DERMATITIS CONTACT [None]
  - DRUG EXPOSURE DURING PREGNANCY [None]
  - HYPERBILIRUBINAEMIA [None]
  - HYPOGLYCAEMIA [None]
  - PREMATURE BABY [None]
  - SEPSIS [None]
  - SMALL FOR DATES BABY [None]
